FAERS Safety Report 6156732-0 (Version None)
Quarter: 2009Q2

REPORT INFORMATION
  Report Type: 
  Country: None (occurrence: None)
  Receive Date: 20090413
  Receipt Date: 20090413
  Transmission Date: 20091009
  Serious: Yes (Disabling)
  Sender: FDA-Public Use
  Company Number: None

PATIENT
  Sex: Female
  Weight: 81.6475 kg

DRUGS (1)
  1. OSMOPREP [Suspect]
     Indication: COLONOSCOPY

REACTIONS (1)
  - RENAL FAILURE ACUTE [None]
